FAERS Safety Report 20136281 (Version 1)
Quarter: 2021Q4

REPORT INFORMATION
  Report Type: Spontaneous
  Country: US (occurrence: None)
  Receive Date: 20211130
  Receipt Date: 20211130
  Transmission Date: 20220303
  Serious: Yes (Other)
  Sender: FDA-Public Use
  Company Number: None

PATIENT
  Age: 52 Year
  Sex: Female
  Weight: 95.25 kg

DRUGS (1)
  1. OCREVUS [Suspect]
     Active Substance: OCRELIZUMAB
     Indication: Multiple sclerosis
     Dosage: OTHER FREQUENCY : EVERY 6 MONTHS;?
     Route: 042

REACTIONS (9)
  - Throat irritation [None]
  - Ear pruritus [None]
  - Flushing [None]
  - Headache [None]
  - Chills [None]
  - Hyperhidrosis [None]
  - Feeling hot [None]
  - Pyrexia [None]
  - Therapy cessation [None]

NARRATIVE: CASE EVENT DATE: 20211014
